FAERS Safety Report 4650817-3 (Version None)
Quarter: 2005Q2

REPORT INFORMATION
  Report Type: 
  Country: None (occurrence: None)
  Receive Date: 20050503
  Receipt Date: 20050413
  Transmission Date: 20051028
  Serious: Yes (Disabling)
  Sender: FDA-Public Use
  Company Number: PHBS2005IT05217

PATIENT
  Age: 64 Year
  Sex: Male

DRUGS (5)
  1. AREDIA [Suspect]
     Indication: BREAST CANCER
     Dosage: 90 MG, QMO
     Dates: start: 20020105, end: 20031222
  2. ZOMETA [Suspect]
     Indication: BREAST CANCER
     Dosage: 4 MG, QMO
     Dates: start: 20030502, end: 20050402
  3. EPIRUBICIN HYDROCHLORIDE [Concomitant]
     Indication: BREAST CANCER
     Dates: start: 20021103, end: 20050407
  4. EXEMESTANE [Concomitant]
     Indication: BREAST CANCER
  5. PACLITAXEL [Concomitant]
     Indication: BREAST CANCER

REACTIONS (2)
  - ASEPTIC NECROSIS BONE [None]
  - WOUND DEBRIDEMENT [None]
